FAERS Safety Report 4915807-1 (Version None)
Quarter: 2006Q1

REPORT INFORMATION
  Report Type: 
  Country: None (occurrence: None)
  Receive Date: 20060217
  Receipt Date: 20060206
  Transmission Date: 20060701
  Serious: Yes (Hospitalization)
  Sender: FDA-Public Use
  Company Number: US-ROCHE-435278

PATIENT
  Age: 73 Year
  Sex: Female

DRUGS (5)
  1. BONIVA [Suspect]
     Indication: OSTEOPENIA
     Route: 048
     Dates: start: 20060112, end: 20060112
  2. INDERAL LA [Concomitant]
     Indication: HYPERTENSION
     Route: 048
  3. ZESTORETIC [Concomitant]
     Indication: HYPERTENSION
     Dosage: STRENGTH REPORTED AS: 20/25. NO UNITS GIVEN.
     Route: 048
  4. PRILOSEC [Concomitant]
     Indication: ULCER
     Route: 048
  5. ASPIRIN [Concomitant]
     Dosage: STRENGTH REPORTED AS LOW DOSE GIVEN EVERY DAY..
     Route: 048

REACTIONS (5)
  - ASTHENIA [None]
  - ATELECTASIS [None]
  - BACK PAIN [None]
  - HEADACHE [None]
  - PNEUMONIA [None]
